FAERS Safety Report 8473889-7 (Version None)
Quarter: 2012Q2

REPORT INFORMATION
  Report Type: 
  Country: None (occurrence: None)
  Receive Date: 20120628
  Receipt Date: 20120117
  Transmission Date: 20120825
  Serious: Yes (Death)
  Sender: FDA-Public Use
  Company Number: US-MYLANLABS-2012S1001148

PATIENT
  Age: 60 Year
  Sex: Female

DRUGS (8)
  1. MAG OXIDE [Concomitant]
  2. ANAFRANIL [Concomitant]
  3. CLOZAPINE [Suspect]
     Route: 048
  4. PRAVASTATIN [Concomitant]
  5. VITAMIN B-12 [Concomitant]
  6. FUROSEMIDE [Concomitant]
  7. ACTOS [Concomitant]
  8. LISINOPRIL [Concomitant]

REACTIONS (1)
  - DEATH [None]
